FAERS Safety Report 5097312-8 (Version None)
Quarter: 2006Q3

REPORT INFORMATION
  Report Type: 
  Country: None (occurrence: None)
  Receive Date: 20060906
  Receipt Date: 20060802
  Transmission Date: 20061208
  Serious: Yes (Other)
  Sender: FDA-Public Use
  Company Number: CA-GLAXOSMITHKLINE-A0615253A

PATIENT
  Age: 75 Year
  Sex: Female
  Weight: 50.5 kg

DRUGS (7)
  1. AVANDIA [Suspect]
     Dosage: 2MG PER DAY
     Route: 048
     Dates: start: 20060720, end: 20060721
  2. LIPIDIL [Concomitant]
     Route: 048
  3. DIAMICRON [Concomitant]
     Route: 048
     Dates: start: 20060710
  4. ALTACE [Concomitant]
     Dosage: 10MG UNKNOWN
     Route: 048
  5. DOMPERIDONE [Concomitant]
     Route: 048
  6. LOSEC [Concomitant]
     Route: 048
  7. ACTONEL [Concomitant]
     Dosage: 35MG WEEKLY
     Route: 048

REACTIONS (4)
  - DIARRHOEA [None]
  - DYSPEPSIA [None]
  - STOMACH DISCOMFORT [None]
  - VOMITING [None]
